FAERS Safety Report 19584715 (Version 1)
Quarter: 2021Q3

REPORT INFORMATION
  Report Type: Spontaneous
  Country: BR (occurrence: BR)
  Receive Date: 20210720
  Receipt Date: 20210720
  Transmission Date: 20211014
  Serious: Yes (Death, Other)
  Sender: FDA-Public Use
  Company Number: BR-BAYER-2021-174378

PATIENT
  Age: 52 Year
  Sex: Female
  Weight: 74 kg

DRUGS (4)
  1. ATENOLOL. [Concomitant]
     Active Substance: ATENOLOL
     Indication: HYPERTENSION
  2. STIVARGA [Suspect]
     Active Substance: REGORAFENIB
     Indication: ADENOCARCINOMA OF COLON
     Dosage: 160 MG, QD FOR 21 DAYS EACH 28 DAYS
     Route: 048
     Dates: start: 20140910, end: 20140925
  3. NAPRIX [Concomitant]
     Active Substance: RAMIPRIL
     Indication: HYPERTENSION
  4. STIVARGA [Suspect]
     Active Substance: REGORAFENIB
     Indication: METASTASES TO LUNG
     Dosage: 120MG QD, FOR 21 DAYS, EACH 28 DAYS
     Route: 048
     Dates: start: 20141011, end: 20150724

REACTIONS (10)
  - Metastases to lymph nodes [None]
  - Metastases to central nervous system [None]
  - Metastases to lung [None]
  - Metastases to bone [None]
  - Diarrhoea [None]
  - Fatigue [Recovered/Resolved]
  - Mucosal inflammation [Recovered/Resolved]
  - Adenocarcinoma of colon [None]
  - Fatigue [None]
  - Diarrhoea [Recovered/Resolved]

NARRATIVE: CASE EVENT DATE: 201409
